FAERS Safety Report 5441661-8 (Version None)
Quarter: 2007Q3

REPORT INFORMATION
  Report Type: 
  Country: None (occurrence: None)
  Receive Date: 20070829
  Receipt Date: 20070814
  Transmission Date: 20080115
  Serious: Yes (Other)
  Sender: FDA-Public Use
  Company Number: 2007RR-09176

PATIENT
  Age: 31 Year
  Sex: Female

DRUGS (6)
  1. NIFEDIPINE [Suspect]
     Indication: PREMATURE LABOUR
     Dosage: 20 MG, ORAL
     Route: 048
  2. BETAMETHASONE [Concomitant]
  3. AMOXICILLIN RPG (AMOXICILLIN) [Concomitant]
  4. HEPARIN [Concomitant]
  5. FUROSEMIDE RPG (FUROSEMIDE) [Concomitant]
  6. SYNTOCINON (SYNTOCINON) [Concomitant]

REACTIONS (6)
  - BREATH SOUNDS ABNORMAL [None]
  - CYANOSIS [None]
  - DRUG EXPOSURE DURING PREGNANCY [None]
  - DYSPNOEA [None]
  - HYPOXIA [None]
  - OEDEMA PERIPHERAL [None]
